FAERS Safety Report 12490138 (Version 1)
Quarter: 2016Q2

REPORT INFORMATION
  Report Type: Spontaneous
  Country: US (occurrence: US)
  Receive Date: 20160622
  Receipt Date: 20160622
  Transmission Date: 20160815
  Serious: Yes (Hospitalization, Other)
  Sender: FDA-Public Use
  Company Number: US-PRESTIGE BRANDS -1054224

PATIENT
  Sex: Female

DRUGS (1)
  1. ECOTRIN [Suspect]
     Active Substance: ASPIRIN
     Route: 048

REACTIONS (2)
  - Respiratory distress [Recovering/Resolving]
  - Respiratory failure [Recovering/Resolving]
